FAERS Safety Report 9504647 (Version 1)
Quarter: 2013Q3

REPORT INFORMATION
  Report Type: Spontaneous
  Country: US (occurrence: US)
  Receive Date: 20130906
  Receipt Date: 20130906
  Transmission Date: 20140515
  Serious: No
  Sender: FDA-Public Use
  Company Number: US-PURDUE-USA-2013-0103412

PATIENT
  Sex: Female

DRUGS (1)
  1. INTERMEZZO [Suspect]
     Indication: PRODUCT USED FOR UNKNOWN INDICATION
     Dosage: UNK

REACTIONS (3)
  - Incorrect route of drug administration [None]
  - Throat irritation [Unknown]
  - Dysgeusia [Unknown]
